FAERS Safety Report 14814014 (Version 1)
Quarter: 2018Q2

REPORT INFORMATION
  Report Type: Spontaneous
  Country: FR (occurrence: FR)
  Receive Date: 20180426
  Receipt Date: 20180426
  Transmission Date: 20180711
  Serious: Yes (Other)
  Sender: FDA-Public Use
  Company Number: FR-MERCK KGAA-2046591

PATIENT
  Age: 56 Year
  Sex: Female
  Weight: 57 kg

DRUGS (1)
  1. NOVOTHYROX [Suspect]
     Active Substance: LEVOTHYROXINE SODIUM
     Indication: POST PROCEDURAL HYPOTHYROIDISM
     Route: 048
     Dates: start: 20170618

REACTIONS (28)
  - Impaired driving ability [None]
  - Hypothyroidism [None]
  - Somnolence [None]
  - Insomnia [Not Recovered/Not Resolved]
  - Feeling abnormal [None]
  - Constipation [Not Recovered/Not Resolved]
  - Anxiety [None]
  - Amnesia [Not Recovered/Not Resolved]
  - Apathy [None]
  - General physical health deterioration [None]
  - Aspartate aminotransferase increased [None]
  - Weight increased [None]
  - Impaired work ability [None]
  - Headache [Not Recovered/Not Resolved]
  - Abdominal pain [None]
  - Paraesthesia [Not Recovered/Not Resolved]
  - Asthenia [None]
  - Depression suicidal [Not Recovered/Not Resolved]
  - Muscle spasms [Not Recovered/Not Resolved]
  - Depressed mood [None]
  - Anger [None]
  - Depersonalisation/derealisation disorder [None]
  - Alopecia [Not Recovered/Not Resolved]
  - Visual impairment [Not Recovered/Not Resolved]
  - Fatigue [Not Recovered/Not Resolved]
  - Palpitations [Not Recovered/Not Resolved]
  - Negative thoughts [None]
  - Disturbance in attention [Not Recovered/Not Resolved]

NARRATIVE: CASE EVENT DATE: 2017
